FAERS Safety Report 5463413-5 (Version None)
Quarter: 2007Q3

REPORT INFORMATION
  Report Type: 
  Country: None (occurrence: None)
  Receive Date: 20070920
  Receipt Date: 20070907
  Transmission Date: 20080115
  Serious: Yes (Hospitalization)
  Sender: FDA-Public Use
  Company Number: CA-AMGEN-US242340

PATIENT
  Age: 71 Year
  Sex: Female

DRUGS (7)
  1. ENBREL [Suspect]
     Indication: RHEUMATOID ARTHRITIS
     Route: 065
  2. METHOTREXATE [Suspect]
     Route: 065
  3. ATENOLOL [Concomitant]
  4. CLONIDINE [Concomitant]
  5. ESTRADIOL [Concomitant]
  6. ROFECOXIB [Concomitant]
  7. ASPIRIN [Concomitant]

REACTIONS (5)
  - CARDIAC ARREST [None]
  - PURULENT PERICARDITIS [None]
  - RENAL FAILURE [None]
  - RESPIRATORY FAILURE [None]
  - SEPTIC SHOCK [None]
